FAERS Safety Report 7152300-2 (Version None)
Quarter: 2010Q4

REPORT INFORMATION
  Report Type: 
  Country: None (occurrence: None)
  Receive Date: 20101123
  Receipt Date: 20101116
  Transmission Date: 20110411
  Serious: Yes (Congenital Anomaly, Other)
  Sender: FDA-Public Use
  Company Number: 2010MA004648

PATIENT

DRUGS (5)
  1. FLUOXETINE [Suspect]
     Indication: DRUG EXPOSURE DURING PREGNANCY
     Dosage: 20 MG; QD; TRPL
     Route: 064
     Dates: start: 20090817, end: 20091216
  2. METHADONE HCL [Suspect]
     Indication: DRUG EXPOSURE DURING PREGNANCY
     Dosage: 130 MG; QD; TRPL
     Route: 064
     Dates: start: 20081101, end: 20100525
  3. TRAZODONE (TRAZODONE) [Suspect]
     Indication: DRUG EXPOSURE DURING PREGNANCY
     Dosage: 50 MG; QD; TRPL
     Route: 064
     Dates: start: 20090817, end: 20091216
  4. METHADONE HCL [Suspect]
     Indication: DRUG EXPOSURE DURING PREGNANCY
     Dosage: 100 MG; QD; TRPL
     Route: 064
     Dates: start: 20100525
  5. CERAZETTE [Concomitant]

REACTIONS (6)
  - CHOROIDAL COLOBOMA [None]
  - COLOBOMA [None]
  - IRIS COLOBOMA [None]
  - MATERNAL DRUGS AFFECTING FOETUS [None]
  - OPTIC NERVE DISORDER [None]
  - POSTMATURE BABY [None]
